FAERS Safety Report 19935511 (Version 2)
Quarter: 2021Q4

REPORT INFORMATION
  Report Type: Spontaneous
  Country: CZ (occurrence: CZ)
  Receive Date: 20211008
  Receipt Date: 20211109
  Transmission Date: 20220303
  Serious: Yes (Other)
  Sender: FDA-Public Use
  Company Number: CZ-TEVA-2021-CZ-1962491

PATIENT
  Age: 20 Year
  Sex: Female

DRUGS (4)
  1. LEVETIRACETAM [Suspect]
     Active Substance: LEVETIRACETAM
     Indication: Mixed anxiety and depressive disorder
     Route: 065
  2. LEVETIRACETAM [Suspect]
     Active Substance: LEVETIRACETAM
     Indication: Epilepsy
  3. VALPROATE [Suspect]
     Active Substance: VALPROIC ACID
     Indication: Mixed anxiety and depressive disorder
     Route: 065
  4. VALPROATE [Suspect]
     Active Substance: VALPROIC ACID
     Indication: Epilepsy

REACTIONS (2)
  - Mental disorder [Unknown]
  - Increased appetite [Unknown]
